FAERS Safety Report 6930002-2 (Version None)
Quarter: 2010Q3

REPORT INFORMATION
  Report Type: 
  Country: None (occurrence: None)
  Receive Date: 20100818
  Receipt Date: 20100806
  Transmission Date: 20110219
  Serious: Yes (Hospitalization)
  Sender: FDA-Public Use
  Company Number: ES-PFIZER INC-2010098919

PATIENT
  Age: 67 Year
  Sex: Male

DRUGS (2)
  1. MINODIAB [Suspect]
     Indication: DIABETES MELLITUS
     Dosage: 2.5 MG, 3X/DAY
     Route: 048
     Dates: start: 20100301, end: 20100601
  2. SIMVASTATIN [Concomitant]
     Indication: BLOOD CHOLESTEROL INCREASED
     Dosage: UNK

REACTIONS (1)
  - HEPATITIS TOXIC [None]
